FAERS Safety Report 5246213-0 (Version None)
Quarter: 2007Q1

REPORT INFORMATION
  Report Type: 
  Country: None (occurrence: None)
  Receive Date: 20070221
  Receipt Date: 20070208
  Transmission Date: 20070707
  Serious: Yes (Death)
  Sender: FDA-Public Use
  Company Number: 2006JP002682

PATIENT
  Age: 74 Year
  Sex: Female

DRUGS (16)
  1. TACROLIMUS CAPSULES  (TACROLIMUS) CAPSULE [Suspect]
     Indication: RHEUMATOID ARTHRITIS
     Dosage: SEE IMAGE
     Route: 048
     Dates: start: 20060118, end: 20060131
  2. TACROLIMUS CAPSULES  (TACROLIMUS) CAPSULE [Suspect]
     Indication: RHEUMATOID ARTHRITIS
     Dosage: SEE IMAGE
     Route: 048
     Dates: start: 20060201, end: 20060729
  3. METALCAPTASE [Concomitant]
  4. PREDNISOLONE [Concomitant]
  5. LOXONIN (LOXOPROFEN SODIUM) [Concomitant]
  6. CLINORIL [Concomitant]
  7. MUCOSTA (REBAMIPIDE) [Concomitant]
  8. AMARYL [Concomitant]
  9. PREDNISOLONE [Concomitant]
  10. RABEPRAZOLE SODIUM [Concomitant]
  11. CYTOTEC [Concomitant]
  12. RISEDRONATE SODIUM [Concomitant]
  13. LANSOPRAZOLE [Concomitant]
  14. GASMOTIN (MOSAPRIDE CITRATE) [Concomitant]
  15. SULFASALAZINE [Concomitant]
  16. ETANERCEPT (ETANERCEPT) [Concomitant]

REACTIONS (7)
  - BLOOD PRESSURE INCREASED [None]
  - INTERSTITIAL LUNG DISEASE [None]
  - LUNG DISORDER [None]
  - PNEUMONIA CHLAMYDIAL [None]
  - PULMONARY TUBERCULOSIS [None]
  - RENAL TUBULAR DISORDER [None]
  - RESPIRATORY TRACT INFECTION FUNGAL [None]
